FAERS Safety Report 13798156 (Version 1)
Quarter: 2017Q3

REPORT INFORMATION
  Report Type: Spontaneous
  Country: US (occurrence: US)
  Receive Date: 20170726
  Receipt Date: 20170726
  Transmission Date: 20171127
  Serious: Yes (Disabling)
  Sender: FDA-Public Use
  Company Number: None

PATIENT
  Age: 67 Year
  Sex: Female
  Weight: 57.15 kg

DRUGS (1)
  1. SUBOXONE [Suspect]
     Active Substance: BUPRENORPHINE HYDROCHLORIDE\NALOXONE HYDROCHLORIDE
     Indication: DRUG WITHDRAWAL MAINTENANCE THERAPY
     Route: 061

REACTIONS (4)
  - Drug withdrawal syndrome [None]
  - Nausea [None]
  - Depression [None]
  - Anxiety [None]

NARRATIVE: CASE EVENT DATE: 20170115
